FAERS Safety Report 15908564 (Version 2)
Quarter: 2019Q2

REPORT INFORMATION
  Report Type: Spontaneous
  Country: US (occurrence: US)
  Receive Date: 20190204
  Receipt Date: 20190524
  Transmission Date: 20190711
  Serious: Yes (Hospitalization, Other)
  Sender: FDA-Public Use
  Company Number: US-PFIZER INC-2019040265

PATIENT
  Age: 18 Year
  Sex: Female

DRUGS (3)
  1. DILANTIN [Suspect]
     Active Substance: PHENYTOIN
     Dosage: UNK
     Dates: end: 1992
  2. DILANTIN [Suspect]
     Active Substance: PHENYTOIN
     Indication: SEIZURE
     Dosage: UNK
  3. DILANTIN [Suspect]
     Active Substance: PHENYTOIN
     Dosage: 2 DF, DAILY
     Dates: start: 1965, end: 1988

REACTIONS (7)
  - Weight decreased [Unknown]
  - Pyrexia [Recovered/Resolved]
  - Drug hypersensitivity [Unknown]
  - Dizziness [Unknown]
  - Fatigue [Recovered/Resolved]
  - Balance disorder [Unknown]
  - Rash [Recovered/Resolved]

NARRATIVE: CASE EVENT DATE: 1965
